FAERS Safety Report 5144156-4 (Version None)
Quarter: 2006Q4

REPORT INFORMATION
  Report Type: 
  Country: None (occurrence: None)
  Receive Date: 20061030
  Receipt Date: 20061018
  Transmission Date: 20070319
  Serious: Yes (Life-Threatening, Hospitalization, Other)
  Sender: FDA-Public Use
  Company Number: US_020988395

PATIENT
  Age: 8 Year
  Sex: Male
  Weight: 22 kg

DRUGS (1)
  1. HUMATROPE [Suspect]
     Indication: BODY HEIGHT BELOW NORMAL
     Dosage: 2 U, DAILY (1/D), SUBCUTANEOUS
     Route: 058
     Dates: start: 20000101, end: 20020801

REACTIONS (3)
  - ABDOMINAL PAIN [None]
  - MENINGITIS [None]
  - PAPILLOEDEMA [None]
